FAERS Safety Report 4681282-8 (Version None)
Quarter: 2005Q2

REPORT INFORMATION
  Report Type: 
  Country: None (occurrence: None)
  Receive Date: 20050601
  Receipt Date: 20050512
  Transmission Date: 20051028
  Serious: Yes (Other)
  Sender: FDA-Public Use
  Company Number: PAR_0066_2005

PATIENT
  Age: 17 Year
  Sex: Male

DRUGS (1)
  1. IBUPROFEN [Suspect]
     Indication: POST PROCEDURAL PAIN
     Dosage: DF

REACTIONS (2)
  - ASTHMA [None]
  - CONDITION AGGRAVATED [None]
